FAERS Safety Report 16219173 (Version 11)
Quarter: 2020Q2

REPORT INFORMATION
  Report Type: Report from Study
  Country: US (occurrence: US)
  Receive Date: 20190419
  Receipt Date: 20200422
  Transmission Date: 20200713
  Serious: Yes (Hospitalization, Other)
  Sender: FDA-Public Use
  Company Number: US-ACTELION-A-NJ2019-187520

PATIENT
  Age: 52 Year
  Sex: Female

DRUGS (15)
  1. KLONOPIN [Concomitant]
     Active Substance: CLONAZEPAM
  2. SILDENAFIL. [Concomitant]
     Active Substance: SILDENAFIL
     Indication: PULMONARY ARTERIAL HYPERTENSION
  3. CARVEDILOL. [Concomitant]
     Active Substance: CARVEDILOL
  4. LIPITOR [Concomitant]
     Active Substance: ATORVASTATIN CALCIUM
  5. EMTRICITABINE W/TENOFOVIR [Concomitant]
     Active Substance: EMTRICITABINE\TENOFOVIR DISOPROXIL
  6. ASPIRIN. [Concomitant]
     Active Substance: ASPIRIN
  7. ENTRESTO [Concomitant]
     Active Substance: SACUBITRIL\VALSARTAN
  8. HYDRALAZINE [Concomitant]
     Active Substance: HYDRALAZINE HYDROCHLORIDE
  9. PROTINEX [Concomitant]
  10. OPSUMIT [Suspect]
     Active Substance: MACITENTAN
     Indication: PULMONARY HYPERTENSION
     Dosage: 10 MG, QD
     Route: 048
     Dates: start: 20190315
  11. OPSUMIT [Suspect]
     Active Substance: MACITENTAN
     Dosage: 10 UNK
     Route: 048
     Dates: end: 20200407
  12. ATIVAN [Concomitant]
     Active Substance: LORAZEPAM
  13. GABAPENTIN. [Concomitant]
     Active Substance: GABAPENTIN
  14. BREO ELLIPTA [Concomitant]
     Active Substance: FLUTICASONE FUROATE\VILANTEROL TRIFENATATE
  15. OXYGEN. [Concomitant]
     Active Substance: OXYGEN

REACTIONS (20)
  - Nausea [Unknown]
  - Product dose omission [Unknown]
  - Headache [Unknown]
  - Pneumonia [Recovered/Resolved]
  - Fatigue [Unknown]
  - Dyspnoea [Unknown]
  - Malaise [Unknown]
  - Decreased appetite [Not Recovered/Not Resolved]
  - Gait disturbance [Unknown]
  - Pulmonary arterial pressure decreased [Unknown]
  - Chest pain [Not Recovered/Not Resolved]
  - Feeling abnormal [Unknown]
  - Platelet count decreased [Not Recovered/Not Resolved]
  - White blood cell count decreased [Not Recovered/Not Resolved]
  - Hypotension [Not Recovered/Not Resolved]
  - Condition aggravated [Unknown]
  - Wrist fracture [Unknown]
  - Cardiac failure congestive [Not Recovered/Not Resolved]
  - Hospitalisation [Unknown]
  - Urinary tract infection [Unknown]

NARRATIVE: CASE EVENT DATE: 2019
